FAERS Safety Report 15793072 (Version 1)
Quarter: 2019Q1

REPORT INFORMATION
  Report Type: Report from Study
  Country: KR (occurrence: KR)
  Receive Date: 20190107
  Receipt Date: 20190107
  Transmission Date: 20190417
  Serious: Yes (Death, Hospitalization)
  Sender: FDA-Public Use
  Company Number: PHHY2019KR001288

PATIENT
  Age: 16 Year
  Sex: Male

DRUGS (1)
  1. ICL670A [Suspect]
     Active Substance: DEFERASIROX
     Indication: APLASTIC ANAEMIA
     Route: 065

REACTIONS (2)
  - Condition aggravated [Fatal]
  - Sepsis [Fatal]

NARRATIVE: CASE EVENT DATE: 20151003
